FAERS Safety Report 13673345 (Version 7)
Quarter: 2018Q1

REPORT INFORMATION
  Report Type: Spontaneous
  Country: US (occurrence: US)
  Receive Date: 20170621
  Receipt Date: 20180212
  Transmission Date: 20180508
  Serious: No
  Sender: FDA-Public Use
  Company Number: US-BRISTOL-MYERS SQUIBB COMPANY-BMS-2017-054462

PATIENT
  Age: 41 Year
  Sex: Female
  Weight: 43.9 kg

DRUGS (1)
  1. SPRYCEL [Suspect]
     Active Substance: DASATINIB
     Indication: CHRONIC MYELOID LEUKAEMIA
     Dosage: 100 MG, QD
     Route: 048
     Dates: start: 20160612

REACTIONS (15)
  - Fatigue [Unknown]
  - Abdominal distension [Unknown]
  - Muscle spasms [Unknown]
  - Infection [Unknown]
  - Dyspnoea [Unknown]
  - Acne [Unknown]
  - Cough [Recovering/Resolving]
  - Alopecia [Unknown]
  - Rash [Unknown]
  - Tinnitus [Unknown]
  - Productive cough [Recovering/Resolving]
  - Weight increased [Unknown]
  - Oedema peripheral [Unknown]
  - Pain [Unknown]
  - Visual impairment [Unknown]

NARRATIVE: CASE EVENT DATE: 20170816
